FAERS Safety Report 8999957 (Version 1)
Quarter: 2013Q1

REPORT INFORMATION
  Report Type: Spontaneous
  Country: US (occurrence: US)
  Receive Date: 20130102
  Receipt Date: 20130102
  Transmission Date: 20140127
  Serious: Yes (Death)
  Sender: FDA-Public Use
  Company Number: US-ASTELLAS-2012US012764

PATIENT
  Sex: Female
  Weight: 75 kg

DRUGS (1)
  1. PROGRAF [Suspect]
     Indication: BONE MARROW TRANSPLANT
     Dosage: 0.5 MG, UID/QD
     Route: 048
     Dates: end: 201207

REACTIONS (3)
  - Off label use [Unknown]
  - Death [Fatal]
  - Disease recurrence [Unknown]
